FAERS Safety Report 8427336-1 (Version None)
Quarter: 2012Q2

REPORT INFORMATION
  Report Type: 
  Country: None (occurrence: None)
  Receive Date: 20120611
  Receipt Date: 20120604
  Transmission Date: 20120825
  Serious: Yes (Life-Threatening, Hospitalization)
  Sender: FDA-Public Use
  Company Number: FR-UCBSA-056801

PATIENT
  Age: 47 Year
  Sex: Male

DRUGS (23)
  1. SUFENTANIL CITRATE [Concomitant]
     Dates: start: 20120302, end: 20120307
  2. DIPRIVAN [Concomitant]
     Dates: start: 20120302, end: 20120308
  3. RAMIPRIL [Suspect]
     Dosage: DAILY DOSE: 2.5 MG
     Route: 048
     Dates: start: 20120308, end: 20120409
  4. ACETAMINOPHEN [Concomitant]
  5. EUPRESSYL [Concomitant]
     Indication: HYPERTENSION
     Route: 042
     Dates: start: 20120302, end: 20120307
  6. VANCOMYCIN [Concomitant]
     Dosage: 2 G DAILY
     Dates: start: 20120318, end: 20120321
  7. KEPPRA [Suspect]
     Route: 048
     Dates: start: 20120319, end: 20120406
  8. NICARDIPINE HYDROCHLORIDE [Concomitant]
     Dosage: LOXEN LP
     Route: 048
     Dates: start: 20120310
  9. NEXIUM [Concomitant]
     Dates: start: 20120302, end: 20120322
  10. EUPRESSYL [Concomitant]
     Route: 048
     Dates: start: 20120326, end: 20120401
  11. EUPRESSYL [Concomitant]
     Route: 048
     Dates: start: 20120410
  12. MIDAZOLAM HCL [Concomitant]
     Dates: start: 20120302, end: 20120311
  13. ESIDRIX [Suspect]
     Dosage: DAILY DOSE: 25 MG
     Route: 048
     Dates: start: 20120320, end: 20120409
  14. IMIPENEM AND CILASTATIN SODIUM [Concomitant]
     Dates: start: 20120318, end: 20120321
  15. LASIX [Concomitant]
     Dosage: 20
  16. CLAFORAN [Suspect]
     Dates: start: 20120321, end: 20120408
  17. NICARDIPINE HYDROCHLORIDE [Concomitant]
     Indication: HYPERTENSION
     Dosage: UNKNOWN DOSE
     Route: 042
     Dates: start: 20120304, end: 20120307
  18. ATENOLOL [Concomitant]
     Indication: HYPERTENSION
     Route: 048
     Dates: start: 20120313
  19. EUPRESSYL [Concomitant]
     Route: 048
     Dates: start: 20120313, end: 20120313
  20. AUGMENTIN [Concomitant]
     Dates: start: 20120306, end: 20120311
  21. KEPPRA [Suspect]
     Route: 042
     Dates: start: 20120318, end: 20120318
  22. CATAPRES [Concomitant]
     Indication: HYPERTENSION
     Dosage: UNKNOWN DOSE
     Route: 042
     Dates: start: 20120306, end: 20120312
  23. LOVENOX [Concomitant]
     Dosage: 0.4
     Dates: start: 20120326

REACTIONS (4)
  - AGRANULOCYTOSIS [None]
  - ENTEROBACTER INFECTION [None]
  - NEUTROPENIA [None]
  - LEUKOPENIA [None]
